FAERS Safety Report 18070499 (Version 2)
Quarter: 2020Q3

REPORT INFORMATION
  Report Type: Spontaneous
  Country: US (occurrence: US)
  Receive Date: 20200727
  Receipt Date: 20200731
  Transmission Date: 20201103
  Serious: Yes (Other)
  Sender: FDA-Public Use
  Company Number: US-DRREDDYS-USA/USA/20/0125410

PATIENT
  Age: 63 Year
  Sex: Female

DRUGS (7)
  1. NALOXONE HYDROCHLORIDE. [Suspect]
     Active Substance: NALOXONE HYDROCHLORIDE
     Indication: SEDATION
  2. XYLOCAINE [Suspect]
     Active Substance: LIDOCAINE HYDROCHLORIDE
     Indication: PRODUCT USED FOR UNKNOWN INDICATION
     Dosage: INJECTED 6ML OF 50:50 MIXTURE OF 2% LIDOCAINE [XYLOCAINE] AND 0.75% BUPIVACAINE ALONG WITH HYALURONI
  3. CHLORPROMAZINE. [Suspect]
     Active Substance: CHLORPROMAZINE
     Indication: EYE PAIN
     Route: 056
  4. CHLORPROMAZINE. [Suspect]
     Active Substance: CHLORPROMAZINE
     Dosage: SECOND RETROBULBAR INJECTION WAS GIVEN WITH 1ML OF 25 MG/ML
     Route: 056
  5. HYALURONIDASE [Concomitant]
     Active Substance: HYALURONIDASE
     Indication: PRODUCT USED FOR UNKNOWN INDICATION
  6. BUPIVACAINE. [Suspect]
     Active Substance: BUPIVACAINE
     Indication: PRODUCT USED FOR UNKNOWN INDICATION
     Dosage: INJECTED 6ML OF 50:50 MIXTURE OF 2% LIDOCAINE [XYLOCAINE] AND 0.75% BUPIVACAINE ALONG WITH HYALURONI
  7. XYLOCAINE [Suspect]
     Active Substance: LIDOCAINE HYDROCHLORIDE

REACTIONS (5)
  - Somnolence [Unknown]
  - Drug ineffective [Unknown]
  - Depressed level of consciousness [Unknown]
  - Hypotension [Unknown]
  - Sedation [Unknown]
